FAERS Safety Report 5287792-7 (Version None)
Quarter: 2007Q1

REPORT INFORMATION
  Report Type: 
  Country: None (occurrence: None)
  Receive Date: 20070112
  Receipt Date: 20060818
  Transmission Date: 20070707
  Serious: Yes (Other)
  Sender: FDA-Public Use
  Company Number: 2006070648

PATIENT

DRUGS (2)
  1. DIFLUCAN [Suspect]
     Indication: CRYPTOCOCCOSIS
     Dosage: 400 MG (400 MG)
  2. CHEMOTHERAPY NOS (CHEMOTHERAPY NOS) [Suspect]
     Indication: DRUG USE FOR UNKNOWN INDICATION

REACTIONS (3)
  - DRUG INEFFECTIVE [None]
  - LEUKOPENIA [None]
  - NEUTROPENIA [None]
